FAERS Safety Report 5976261-4 (Version None)
Quarter: 2008Q4

REPORT INFORMATION
  Report Type: 
  Country: None (occurrence: None)
  Receive Date: 20081202
  Receipt Date: 20081120
  Transmission Date: 20090506
  Serious: Yes (Other)
  Sender: FDA-Public Use
  Company Number: DE-ASTRAZENECA-2008AC03042

PATIENT
  Age: 29 Year
  Sex: Female

DRUGS (1)
  1. BUDESONIDE [Suspect]
     Indication: ASTHMA
     Route: 055

REACTIONS (2)
  - HISTOPLASMOSIS CUTANEOUS [None]
  - IMMUNOSUPPRESSION [None]
